FAERS Safety Report 9207131 (Version 3)
Quarter: 2013Q4

REPORT INFORMATION
  Report Type: Spontaneous
  Country: FR (occurrence: FR)
  Receive Date: 20130403
  Receipt Date: 20131217
  Transmission Date: 20140711
  Serious: Yes (Hospitalization, Other)
  Sender: FDA-Public Use
  Company Number: FR-BAXTER-2013BAX011344

PATIENT
  Age: 63 Year
  Sex: Female

DRUGS (8)
  1. ENDOXAN 2000 MG, LYOPHILISAT POUR SOLUTION INJECTABLE [Suspect]
     Indication: BREAST CANCER
     Route: 042
     Dates: start: 20130124, end: 20130124
  2. TAXOTERE [Suspect]
     Indication: BREAST CANCER
     Route: 042
     Dates: start: 20120124, end: 20130124
  3. AUGMENTIN [Suspect]
     Indication: STAPHYLOCOCCAL INFECTION
     Route: 048
     Dates: start: 20130128, end: 20130201
  4. CLAMOXYL [Suspect]
     Indication: STAPHYLOCOCCAL INFECTION
     Route: 048
     Dates: start: 20130128, end: 20130201
  5. ORBENINE [Suspect]
     Indication: STAPHYLOCOCCAL INFECTION
     Route: 042
     Dates: start: 20130201, end: 20130203
  6. GENTAMICINE [Suspect]
     Indication: STAPHYLOCOCCAL INFECTION
     Route: 042
     Dates: start: 20130201, end: 20130203
  7. LYRICA [Suspect]
     Indication: PAIN IN EXTREMITY
     Dosage: 1 CAPSULE
     Route: 048
     Dates: start: 20130129, end: 20130212
  8. ACUPAN [Concomitant]
     Indication: PAIN IN EXTREMITY
     Route: 042
     Dates: start: 20130129, end: 20130129

REACTIONS (3)
  - Renal failure [Recovered/Resolved]
  - Staphylococcal infection [Unknown]
  - Pain in extremity [Unknown]
